FAERS Safety Report 20323983 (Version 1)
Quarter: 2022Q1

REPORT INFORMATION
  Report Type: Report from Study
  Country: CA (occurrence: CA)
  Receive Date: 20220111
  Receipt Date: 20220111
  Transmission Date: 20220423
  Serious: Yes (Other)
  Sender: FDA-Public Use
  Company Number: CA-CELGENE-CAN-20220102064

PATIENT
  Age: 73 Year
  Weight: 82.5 kg

DRUGS (1)
  1. REBLOZYL [Suspect]
     Active Substance: LUSPATERCEPT-AAMT
     Indication: Myelodysplastic syndrome
     Dosage: 150 MILLIGRAM
     Route: 058

REACTIONS (1)
  - Nasopharyngeal tumour [Unknown]

NARRATIVE: CASE EVENT DATE: 20211214
